FAERS Safety Report 6537684-8 (Version None)
Quarter: 2010Q1

REPORT INFORMATION
  Report Type: 
  Country: None (occurrence: None)
  Receive Date: 20100114
  Receipt Date: 20100107
  Transmission Date: 20100710
  Serious: Yes (Hospitalization)
  Sender: FDA-Public Use
  Company Number: DE-ELI_LILLY_AND_COMPANY-DE200909004831

PATIENT
  Age: 71 Year
  Sex: Female

DRUGS (2)
  1. DULOXETINE HYDROCHLORIDE [Suspect]
     Indication: NEUROPATHY PERIPHERAL
     Dosage: 60 MG, UNK
     Route: 048
     Dates: start: 20090702, end: 20090825
  2. NOVAMIN [Concomitant]
     Indication: PAIN
     Dosage: 1500 MG, UNK
     Route: 048
     Dates: start: 20090520

REACTIONS (1)
  - FALL [None]
